FAERS Safety Report 20853159 (Version 1)
Quarter: 2022Q2

REPORT INFORMATION
  Report Type: Spontaneous
  Country: HR (occurrence: HR)
  Receive Date: 20220520
  Receipt Date: 20220520
  Transmission Date: 20220721
  Serious: Yes (Hospitalization, Other)
  Sender: FDA-Public Use
  Company Number: HR-009507513-2205HRV004899

PATIENT
  Age: 39 Year
  Sex: Male

DRUGS (1)
  1. KEYTRUDA [Suspect]
     Active Substance: PEMBROLIZUMAB
     Indication: Metastatic malignant melanoma
     Dosage: 200 MILLIGRAM, Q3W
     Dates: start: 2018

REACTIONS (7)
  - Congestive cardiomyopathy [Unknown]
  - Tumour pseudoprogression [Unknown]
  - Adrenal insufficiency [Unknown]
  - Adrenal adenoma [Unknown]
  - Hypogonadism [Unknown]
  - Obesity [Unknown]
  - Pulmonary mass [Unknown]

NARRATIVE: CASE EVENT DATE: 20180101
